FAERS Safety Report 4713796-6 (Version None)
Quarter: 2005Q3

REPORT INFORMATION
  Report Type: 
  Country: None (occurrence: None)
  Receive Date: 20050712
  Receipt Date: 20050630
  Transmission Date: 20060218
  Serious: Yes (Other)
  Sender: FDA-Public Use
  Company Number: 2005-129996-NL

PATIENT
  Sex: Female

DRUGS (5)
  1. FOLLISTIM AQ [Suspect]
     Dosage: 300 IU DAILY SUBCUTANEOUS, ADJUSTMENTS OF 75-150 IU WERE ALLOWED
     Route: 058
  2. ORGALUTRAN [Suspect]
     Dosage: 250 UG  QD
  3. PREGNYL [Suspect]
     Dosage: 5.000 TO 10.000 IU
     Route: 015
  4. PROGESTERONE [Suspect]
     Indication: INFERTILITY
  5. DESOGEN [Concomitant]

REACTIONS (2)
  - DRUG EXPOSURE DURING PREGNANCY [None]
  - ECTOPIC PREGNANCY [None]
